FAERS Safety Report 6618088-6 (Version None)
Quarter: 2010Q1

REPORT INFORMATION
  Report Type: 
  Country: None (occurrence: None)
  Receive Date: 20100308
  Receipt Date: 20100226
  Transmission Date: 20100710
  Serious: Yes (Other)
  Sender: FDA-Public Use
  Company Number: US-PFIZER INC-2010026852

PATIENT
  Age: 68 Year
  Sex: Male

DRUGS (9)
  1. LIPITOR [Suspect]
     Dosage: UNK
     Dates: start: 19990101
  2. NORVASC [Concomitant]
     Dosage: UNK
  3. FLONASE [Concomitant]
     Dosage: UNK
  4. LOSARTAN [Concomitant]
     Dosage: UNK
  5. ROBAXIN [Concomitant]
     Dosage: UNK
  6. NYSTATIN [Concomitant]
     Dosage: UNK
     Route: 061
  7. OXYCODONE [Concomitant]
     Dosage: UNK
  8. METFORMIN [Concomitant]
  9. METFORMIN HYDROCHLORIDE/SITAGLIPTIN [Concomitant]

REACTIONS (4)
  - LEUKOPENIA [None]
  - PLATELET COUNT ABNORMAL [None]
  - THROMBOCYTOPENIA [None]
  - WHITE BLOOD CELL COUNT ABNORMAL [None]
